FAERS Safety Report 5559958-X (Version None)
Quarter: 2007Q4

REPORT INFORMATION
  Report Type: 
  Country: None (occurrence: None)
  Receive Date: 20071214
  Receipt Date: 20071022
  Transmission Date: 20080405
  Serious: Yes (Hospitalization)
  Sender: FDA-Public Use
  Company Number: US-ABBOTT-07P-163-0421646-00

PATIENT
  Sex: Female
  Weight: 87.168 kg

DRUGS (10)
  1. HUMIRA [Suspect]
     Indication: DRUG USE FOR UNKNOWN INDICATION
  2. INFLIXIMAB [Suspect]
     Indication: CROHN'S DISEASE
     Route: 042
     Dates: start: 20020812
  3. INFLIXIMAB [Suspect]
     Dates: start: 20021112
  4. INFLIXIMAB [Suspect]
     Dates: start: 20030204
  5. INFLIXIMAB [Suspect]
     Dates: start: 20030404
  6. INFLIXIMAB [Suspect]
     Dates: start: 20030603
  7. INFLIXIMAB [Suspect]
     Dates: start: 20030804
  8. ANTIDEPRESSANTS [Concomitant]
     Indication: DRUG USE FOR UNKNOWN INDICATION
  9. MESALAMINE [Concomitant]
     Indication: DRUG USE FOR UNKNOWN INDICATION
  10. BUDESONIDE [Concomitant]
     Indication: DRUG USE FOR UNKNOWN INDICATION

REACTIONS (4)
  - DEHYDRATION [None]
  - DIARRHOEA [None]
  - HYPOKALAEMIA [None]
  - NAUSEA [None]
